FAERS Safety Report 10255794 (Version 1)
Quarter: 2014Q2

REPORT INFORMATION
  Report Type: Spontaneous
  Country: US (occurrence: None)
  Receive Date: 20140522
  Receipt Date: 20140522
  Transmission Date: 20141212
  Serious: No
  Sender: FDA-Public Use
  Company Number: 1000054069

PATIENT
  Age: 81 Year
  Sex: Female

DRUGS (1)
  1. TUDORZA PRESSAIR (ACLIDINIUM BROMIDE) (400 MICROGRAM, POWDER) [Suspect]
     Indication: EMPHYSEMA
     Dosage: 800 UG (400 UG, 2 IN 1 D)?
     Route: 055
     Dates: start: 20140201

REACTIONS (1)
  - Eye pain [None]
